FAERS Safety Report 10076094 (Version 1)
Quarter: 2014Q2

REPORT INFORMATION
  Report Type: Spontaneous
  Country: US (occurrence: None)
  Receive Date: 20140410
  Receipt Date: 20140410
  Transmission Date: 20141212
  Serious: Yes (Hospitalization)
  Sender: FDA-Public Use
  Company Number: IMP_07546_2014

PATIENT
  Age: 4 Year
  Sex: Female

DRUGS (4)
  1. VALPROIC ACID [Suspect]
     Indication: COMPLEX PARTIAL SEIZURES
  2. LACOSAMIDE [Suspect]
     Indication: PRODUCT USED FOR UNKNOWN INDICATION
  3. OXCARBAZEPINE [Concomitant]
  4. CARBAMAZEPINE [Concomitant]

REACTIONS (6)
  - Toxicity to various agents [None]
  - Convulsion [None]
  - Drug level increased [None]
  - Bone marrow failure [None]
  - Ammonia increased [None]
  - Hyperammonaemic encephalopathy [None]
